FAERS Safety Report 23327844 (Version 1)
Quarter: 2023Q4

REPORT INFORMATION
  Report Type: Spontaneous
  Country: JP (occurrence: None)
  Receive Date: 20231221
  Receipt Date: 20231221
  Transmission Date: 20240110
  Serious: Yes (Other)
  Sender: FDA-Public Use
  Company Number: 2023A110935

PATIENT
  Age: 74 Year
  Sex: Male

DRUGS (5)
  1. ONDEXXYA [Suspect]
     Active Substance: ANDEXANET ALFA
     Indication: Haemorrhage
     Dosage: 880 MG, 400 MG IV AT 30 MG/MIN, FOLLOWED BY 480 MG IV AT 4 MG/MIN FOR 2 HOURS, 2 V + 2.4 V
     Route: 042
     Dates: start: 20230508, end: 20230508
  2. ELIQUIS [Concomitant]
     Active Substance: APIXABAN
     Indication: Atrial fibrillation
     Dosage: DOSE UNKNOWN, PERORAL MEDICINE
     Route: 048
  3. UNSPECIFIED INGREDIENT [Concomitant]
     Active Substance: UNSPECIFIED INGREDIENT
     Dosage: DOSE UNKNOWN
  4. HEPARIN SODIUM [Concomitant]
     Active Substance: HEPARIN SODIUM
     Dosage: A TOTAL OF 64,000 UNITS
  5. ANTITHROMBIN GAMMA(GENETICAL RECOMBINATION) [Concomitant]
     Dosage: 3000 IU INTERNATIONAL UNIT

REACTIONS (1)
  - Heparin resistance [Unknown]

NARRATIVE: CASE EVENT DATE: 20230508
